FAERS Safety Report 7085240-8 (Version None)
Quarter: 2010Q4

REPORT INFORMATION
  Report Type: 
  Country: None (occurrence: None)
  Receive Date: 20101105
  Receipt Date: 20101022
  Transmission Date: 20110411
  Serious: Yes (Other)
  Sender: FDA-Public Use
  Company Number: US-AMGEN-QUU443482

PATIENT

DRUGS (15)
  1. NPLATE [Suspect]
     Indication: IDIOPATHIC THROMBOCYTOPENIC PURPURA
     Dosage: UNK UNK, QWK
     Route: 058
     Dates: start: 20100428, end: 20100825
  2. NPLATE [Suspect]
  3. LISINOPRIL [Concomitant]
     Dosage: 40 MG, QD
     Route: 048
  4. GLUCOSAMINE + CHONDROITIN [Concomitant]
     Dosage: UNK UNK, QD
     Route: 048
  5. HYDROCHLOROTHIAZIDE [Concomitant]
     Dosage: 25 MG, UNK
     Route: 048
  6. METOPROLOL [Concomitant]
     Dosage: 100 MG, QD
     Route: 048
  7. CATAPRES                           /00171101/ [Concomitant]
     Dosage: 0.1 MG, QD
     Route: 048
  8. PREDNISONE [Concomitant]
     Dosage: 20 MG, UNK
     Dates: end: 20100308
  9. DEXAMETHASONE [Concomitant]
     Dosage: 10 MG, UNK
     Dates: end: 20100308
  10. ACTONEL [Concomitant]
  11. PROGESTERONE [Concomitant]
  12. CLONIDINE [Concomitant]
  13. MEDROL [Concomitant]
  14. BLOOD CELLS, PACKED HUMAN [Concomitant]
  15. PLATELETS [Concomitant]

REACTIONS (5)
  - CHRONIC MYELOMONOCYTIC LEUKAEMIA [None]
  - CONTUSION [None]
  - OROPHARYNGEAL BLISTERING [None]
  - PETECHIAE [None]
  - SINUSITIS [None]
